FAERS Safety Report 8321907-9 (Version None)
Quarter: 2012Q2

REPORT INFORMATION
  Report Type: 
  Country: None (occurrence: None)
  Receive Date: 20120430
  Receipt Date: 20091124
  Transmission Date: 20120825
  Serious: No
  Sender: FDA-Public Use
  Company Number: US-TEVA-2009029277

PATIENT
  Sex: Female
  Weight: 77.18 kg

DRUGS (4)
  1. NUVIGIL [Suspect]
     Route: 048
  2. NUVIGIL [Suspect]
     Indication: SOMNOLENCE
     Dosage: 100 MILLIGRAM;
     Route: 048
     Dates: start: 20090301, end: 20091001
  3. NUVIGIL [Suspect]
     Dosage: 250 MILLIGRAM;
     Route: 048
  4. NUVIGIL [Suspect]
     Dosage: 125 MILLIGRAM;
     Route: 048
     Dates: start: 20091001, end: 20091101

REACTIONS (3)
  - INTENTIONAL DRUG MISUSE [None]
  - AGITATION [None]
  - DRUG INEFFECTIVE FOR UNAPPROVED INDICATION [None]
